FAERS Safety Report 12933462 (Version 1)
Quarter: 2016Q4

REPORT INFORMATION
  Report Type: Spontaneous
  Country: US (occurrence: US)
  Receive Date: 20161111
  Receipt Date: 20161111
  Transmission Date: 20170207
  Serious: Yes (Other)
  Sender: FDA-Public Use
  Company Number: US-BRISTOL-MYERS SQUIBB COMPANY-BMS-2016-088586

PATIENT
  Sex: Female

DRUGS (2)
  1. OPDIVO [Suspect]
     Active Substance: NIVOLUMAB
     Indication: MALIGNANT MELANOMA
     Dosage: 3 MG/KG, Q2WK
     Route: 042
     Dates: start: 20160120, end: 20160331
  2. BENADRYL [Concomitant]
     Active Substance: DIPHENHYDRAMINE HYDROCHLORIDE
     Indication: PREMEDICATION
     Dosage: UNK
     Route: 065

REACTIONS (14)
  - Rash [Recovered/Resolved]
  - Headache [Recovered/Resolved]
  - Pruritus [Not Recovered/Not Resolved]
  - Emotional disorder [Unknown]
  - Chest discomfort [Unknown]
  - Fatigue [Unknown]
  - Stomatitis [Not Recovered/Not Resolved]
  - Insomnia [Unknown]
  - Skin ulcer [Unknown]
  - Malignant neoplasm progression [Unknown]
  - Urticaria [Recovered/Resolved]
  - Tongue ulceration [Not Recovered/Not Resolved]
  - Cough [Recovered/Resolved]
  - Nausea [Unknown]
